FAERS Safety Report 12482400 (Version 5)
Quarter: 2016Q4

REPORT INFORMATION
  Report Type: Spontaneous
  Country: US (occurrence: US)
  Receive Date: 20160620
  Receipt Date: 20161010
  Transmission Date: 20170207
  Serious: No
  Sender: FDA-Public Use
  Company Number: US-LUNDBECK-DKLU2014899

PATIENT
  Age: 71 Year
  Sex: Female
  Weight: 71 kg

DRUGS (3)
  1. NORTHERA [Suspect]
     Active Substance: DROXIDOPA
     Dosage: SCHEDULE C
     Route: 065
  2. SALT [Concomitant]
     Active Substance: SODIUM CHLORIDE
     Indication: PRODUCT USED FOR UNKNOWN INDICATION
     Route: 065
  3. NORTHERA [Suspect]
     Active Substance: DROXIDOPA
     Indication: PRODUCT USED FOR UNKNOWN INDICATION
     Dosage: TITRATION
     Route: 065
     Dates: start: 20160603

REACTIONS (8)
  - Labile blood pressure [Unknown]
  - Asthenia [Unknown]
  - Hypertension [Unknown]
  - Anal incontinence [Unknown]
  - Arthritis [Unknown]
  - Drug ineffective [Unknown]
  - Sensory disturbance [Unknown]
  - Drug dose omission [Unknown]

NARRATIVE: CASE EVENT DATE: 201606
